FAERS Safety Report 11969772 (Version 1)
Quarter: 2016Q1

REPORT INFORMATION
  Report Type: Spontaneous
  Country: US (occurrence: US)
  Receive Date: 20160128
  Receipt Date: 20160128
  Transmission Date: 20160526
  Serious: Yes (Other)
  Sender: FDA-Public Use
  Company Number: US-APOTEX-2016AP005900

PATIENT
  Age: 25 Year
  Sex: Female

DRUGS (8)
  1. DROXIDOPA [Suspect]
     Active Substance: DROXIDOPA
     Indication: ORTHOSTATIC HYPOTENSION
     Dosage: 100 MG, TID
     Route: 048
     Dates: start: 20151202, end: 20151215
  2. FLORINEF ACETATE [Concomitant]
     Active Substance: FLUDROCORTISONE ACETATE
     Indication: PRODUCT USED FOR UNKNOWN INDICATION
     Dosage: UNK
     Route: 065
     Dates: end: 20151217
  3. DROXIDOPA [Suspect]
     Active Substance: DROXIDOPA
     Indication: HYPOTENSION
     Dosage: 900 MG, DAILY
     Route: 048
     Dates: start: 20151202
  4. MIDODRINE HYDROCHLORIDE. [Suspect]
     Active Substance: MIDODRINE HYDROCHLORIDE
     Indication: PRODUCT USED FOR UNKNOWN INDICATION
     Dosage: 2-3 TIMES DAILY
     Route: 065
  5. DROXIDOPA [Suspect]
     Active Substance: DROXIDOPA
     Indication: SYNCOPE
  6. DROXIDOPA [Suspect]
     Active Substance: DROXIDOPA
     Indication: LOSS OF CONSCIOUSNESS
  7. MIDODRINE HYDROCHLORIDE. [Suspect]
     Active Substance: MIDODRINE HYDROCHLORIDE
     Dosage: DECREASED
     Route: 065
  8. MIDODRINE HYDROCHLORIDE. [Suspect]
     Active Substance: MIDODRINE HYDROCHLORIDE
     Dosage: RESTARTED, TAKING PREVIOUS DOSE
     Route: 065

REACTIONS (4)
  - Burning sensation [Recovered/Resolved]
  - Malaise [Recovered/Resolved]
  - Loss of consciousness [Not Recovered/Not Resolved]
  - Vomiting [Recovered/Resolved]

NARRATIVE: CASE EVENT DATE: 20151202
